FAERS Safety Report 25056898 (Version 1)
Quarter: 2025Q1

REPORT INFORMATION
  Report Type: Spontaneous
  Country: PR (occurrence: PR)
  Receive Date: 20250310
  Receipt Date: 20250310
  Transmission Date: 20250409
  Serious: No
  Sender: BEIGENE
  Company Number: PR-BEIGENE-BGN-2025-003449

PATIENT
  Age: 84 Year

DRUGS (1)
  1. BRUKINSA [Suspect]
     Active Substance: ZANUBRUTINIB
     Indication: Mantle cell lymphoma
     Dosage: 80 MILLIGRAM, BID

REACTIONS (2)
  - Cellulitis [Unknown]
  - Rash [Unknown]
